FAERS Safety Report 16817640 (Version 2)
Quarter: 2019Q4

REPORT INFORMATION
  Report Type: Spontaneous
  Country: US (occurrence: US)
  Receive Date: 20190917
  Receipt Date: 20191121
  Transmission Date: 20200122
  Serious: Yes (Disabling, Other)
  Sender: FDA-Public Use
  Company Number: US-SA-2019SA255000

PATIENT
  Age: 70 Year
  Sex: Female

DRUGS (1)
  1. DULCOLAX PINK [Suspect]
     Active Substance: BISACODYL
     Dosage: UNK
     Dates: start: 20190905

REACTIONS (18)
  - Loss of consciousness [Unknown]
  - Syncope [Unknown]
  - Skin laceration [Unknown]
  - Cold sweat [Unknown]
  - Limb injury [Unknown]
  - Hyperhidrosis [Unknown]
  - Ear pain [Unknown]
  - Oedema [Unknown]
  - Back injury [Unknown]
  - Chest pain [Unknown]
  - Headache [Unknown]
  - Dizziness [Unknown]
  - Pain in extremity [Unknown]
  - Post concussion syndrome [Unknown]
  - Chest injury [Unknown]
  - Head injury [Unknown]
  - Fall [Unknown]
  - Neck injury [Unknown]

NARRATIVE: CASE EVENT DATE: 2019
